FAERS Safety Report 24997937 (Version 3)
Quarter: 2025Q3

REPORT INFORMATION
  Report Type: Spontaneous
  Country: US (occurrence: US)
  Receive Date: 20250222
  Receipt Date: 20250716
  Transmission Date: 20251021
  Serious: No
  Sender: SANOFI AVENTIS
  Company Number: US-SA-2025SA043072

PATIENT
  Age: 64 Year
  Sex: Male

DRUGS (2)
  1. KEVZARA [Suspect]
     Active Substance: SARILUMAB
     Indication: Polymyalgia rheumatica
     Dosage: 200 MG, QOW
     Route: 058
     Dates: start: 202501
  2. KEVZARA [Suspect]
     Active Substance: SARILUMAB
     Indication: Polyarthritis

REACTIONS (4)
  - Pain [Not Recovered/Not Resolved]
  - Oral pain [Unknown]
  - Stomatitis [Unknown]
  - Product use in unapproved indication [Unknown]

NARRATIVE: CASE EVENT DATE: 20250101
